FAERS Safety Report 8206829-6 (Version None)
Quarter: 2012Q1

REPORT INFORMATION
  Report Type: 
  Country: None (occurrence: None)
  Receive Date: 20120312
  Receipt Date: 20111104
  Transmission Date: 20120608
  Serious: Yes (Other)
  Sender: FDA-Public Use
  Company Number: 2011AM005664

PATIENT
  Age: 60 Year
  Sex: Female
  Weight: 67.1324 kg

DRUGS (6)
  1. SYMLIN [Suspect]
     Indication: TYPE 1 DIABETES MELLITUS
     Dosage: 5 UNITS; BID; SC  10 UNITS; BID SC  7.5 UNITS; BID;SC  5 UNITS;BID;SC  2.5 UNITS;BID;SC
     Route: 058
     Dates: start: 20050101
  2. SYMLIN [Suspect]
     Indication: TYPE 1 DIABETES MELLITUS
     Dosage: 5 UNITS; BID; SC  10 UNITS; BID SC  7.5 UNITS; BID;SC  5 UNITS;BID;SC  2.5 UNITS;BID;SC
     Route: 058
     Dates: end: 20111103
  3. SIMVASTATIN [Concomitant]
  4. SYMLIN [Suspect]
     Indication: TYPE 1 DIABETES MELLITUS
     Dosage: 30 MCG;BID;SC
     Route: 058
     Dates: start: 20111104
  5. LANTUS [Concomitant]
  6. HUMALOG [Concomitant]

REACTIONS (4)
  - HYPOGLYCAEMIA [None]
  - FALL [None]
  - ANKLE FRACTURE [None]
  - FEELING ABNORMAL [None]
